FAERS Safety Report 14889269 (Version 1)
Quarter: 2018Q2

REPORT INFORMATION
  Report Type: Spontaneous
  Country: FR (occurrence: FR)
  Receive Date: 20180514
  Receipt Date: 20180514
  Transmission Date: 20180711
  Serious: Yes (Other)
  Sender: FDA-Public Use
  Company Number: FR-MERCK KGAA-2047659

PATIENT
  Age: 58 Year
  Sex: Female

DRUGS (1)
  1. NOVOTHYROX [Suspect]
     Active Substance: LEVOTHYROXINE SODIUM
     Indication: PRODUCT USED FOR UNKNOWN INDICATION
     Dates: start: 2017

REACTIONS (28)
  - Fall [Recovering/Resolving]
  - Anxiety [Recovering/Resolving]
  - Noninfective gingivitis [Recovering/Resolving]
  - Gastrooesophageal reflux disease [Recovering/Resolving]
  - Impatience [Recovering/Resolving]
  - Inflammation [Recovering/Resolving]
  - Fear [Recovering/Resolving]
  - Oral discomfort [Recovering/Resolving]
  - Psychiatric symptom [Recovering/Resolving]
  - Fatigue [Recovering/Resolving]
  - Joint injury [Recovering/Resolving]
  - Feeling guilty [Recovering/Resolving]
  - Balance disorder [Recovering/Resolving]
  - Hypotension [Recovering/Resolving]
  - Tongue erythema [Recovering/Resolving]
  - Lacrimation increased [Recovering/Resolving]
  - Gingival bleeding [Recovering/Resolving]
  - Stress [Recovering/Resolving]
  - Muscle spasms [Recovering/Resolving]
  - Dizziness [Recovering/Resolving]
  - Sleep disorder [Recovering/Resolving]
  - Decreased interest [Recovering/Resolving]
  - Disturbance in attention [Recovering/Resolving]
  - Nervous system disorder [Recovering/Resolving]
  - Asthenia [Recovering/Resolving]
  - Social avoidant behaviour [Recovering/Resolving]
  - Glossitis [Recovering/Resolving]
  - Head discomfort [Recovering/Resolving]

NARRATIVE: CASE EVENT DATE: 201704
